FAERS Safety Report 6445651-8 (Version None)
Quarter: 2009Q4

REPORT INFORMATION
  Report Type: 
  Country: None (occurrence: None)
  Receive Date: 20091118
  Receipt Date: 20091118
  Transmission Date: 20100525
  Serious: Yes (Life-Threatening, Hospitalization, Disabling)
  Sender: FDA-Public Use
  Company Number: None

PATIENT
  Age: 50 Year
  Sex: Female
  Weight: 170.5 kg

DRUGS (3)
  1. METHADONE HYDROCHLORIDE [Suspect]
     Indication: ARTHRITIS
     Dosage: .5MG 3 TIMES A DAY ORAL
     Route: 048
     Dates: start: 20090201, end: 20090326
  2. METHADONE HYDROCHLORIDE [Suspect]
     Indication: PAIN MANAGEMENT
     Dosage: .5MG 3 TIMES A DAY ORAL
     Route: 048
     Dates: start: 20090201, end: 20090326
  3. CLONAZEPAM [Suspect]

REACTIONS (12)
  - AMNESIA [None]
  - ARTHRITIS [None]
  - COMA [None]
  - CONDITION AGGRAVATED [None]
  - DRUG INTERACTION [None]
  - FIBROMYALGIA [None]
  - GAIT DISTURBANCE [None]
  - HYPERCAPNIA [None]
  - POOR QUALITY SLEEP [None]
  - POST-TRAUMATIC STRESS DISORDER [None]
  - RESPIRATORY DISORDER [None]
  - RIGHT VENTRICULAR FAILURE [None]
